FAERS Safety Report 10470236 (Version 2)
Quarter: 2014Q4

REPORT INFORMATION
  Report Type: Spontaneous
  Country: CH (occurrence: CH)
  Receive Date: 20140923
  Receipt Date: 20141020
  Transmission Date: 20150528
  Serious: Yes (Hospitalization, Other)
  Sender: FDA-Public Use
  Company Number: CH-TEVA-510034ISR

PATIENT
  Age: 69 Year
  Sex: Female
  Weight: 126 kg

DRUGS (23)
  1. BILOL [Concomitant]
     Active Substance: BISOPROLOL
     Indication: HYPERTENSION
     Dosage: 5 MILLIGRAM DAILY;
     Route: 048
  2. ACIDUM FOLICUM STREULI [Concomitant]
     Dosage: 5 MILLIGRAM DAILY;
     Route: 048
     Dates: end: 20140429
  3. SELIPRAN [Concomitant]
     Active Substance: PRAVASTATIN SODIUM
     Indication: DYSLIPIDAEMIA
     Dosage: 20 MILLIGRAM DAILY;
     Route: 048
     Dates: start: 20140427
  4. TOREM [Concomitant]
     Active Substance: TORSEMIDE
     Indication: HYPERTENSION
     Dosage: 10 MILLIGRAM DAILY;
     Route: 048
  5. FRAGMIN [Concomitant]
     Active Substance: DALTEPARIN SODIUM
     Dosage: 20000 IU (INTERNATIONAL UNIT) DAILY;
     Route: 058
     Dates: start: 20140527
  6. KEFZOL [Suspect]
     Active Substance: CEFAZOLIN SODIUM
     Indication: ARTHRITIS BACTERIAL
     Route: 042
     Dates: start: 20140501, end: 20140505
  7. KEFZOL [Suspect]
     Active Substance: CEFAZOLIN SODIUM
     Dosage: 4 GRAM DAILY;
     Route: 042
     Dates: start: 20140508, end: 20140519
  8. CEFTRIAXON SANDOZ [Suspect]
     Active Substance: CEFTRIAXONE
     Indication: CELLULITIS
     Route: 042
     Dates: start: 2014, end: 20140501
  9. AUGMENTIN [Suspect]
     Active Substance: AMOXICILLIN\CLAVULANATE POTASSIUM
     Indication: ARTHRITIS BACTERIAL
     Dosage: 4 DOSAGE FORMS DAILY; 1 DF = 2G AMOXICILLIN SODIUM + 200MG CLAVULANATE POTASSIUM
     Route: 042
     Dates: start: 20140429, end: 20140430
  10. FRAGMIN [Concomitant]
     Active Substance: DALTEPARIN SODIUM
     Indication: ATRIAL FIBRILLATION
     Dosage: 7500 IU (INTERNATIONAL UNIT) DAILY; IN EXCHANGE FOR XARELTO 20MG
     Route: 058
     Dates: start: 20140428, end: 20140501
  11. ZESTRIL [Concomitant]
     Active Substance: LISINOPRIL
     Indication: HYPERTENSIVE HEART DISEASE
     Dosage: 20 MILLIGRAM DAILY;
     Route: 048
  12. KEFZOL [Suspect]
     Active Substance: CEFAZOLIN SODIUM
     Dosage: 2 GRAM DAILY;
     Route: 042
     Dates: start: 20140506, end: 20140507
  13. JANUVIA [Concomitant]
     Active Substance: SITAGLIPTIN PHOSPHATE
     Indication: DIABETES MELLITUS
     Dosage: 50 MILLIGRAM DAILY;
     Route: 048
     Dates: end: 20140427
  14. LEVEMIR [Concomitant]
     Active Substance: INSULIN DETEMIR
     Indication: DIABETES MELLITUS
     Dosage: 60 IU (INTERNATIONAL UNIT) DAILY;
     Route: 058
  15. SYMBICORT 200/6 [Concomitant]
     Indication: ASTHMA
     Dosage: 20 MILLIGRAM DAILY; 1 DF = 200MCG BUDENOSIDE + 6MCG FORMOTEROL FUMARATE
     Route: 055
  16. FRAGMIN [Concomitant]
     Active Substance: DALTEPARIN SODIUM
     Dosage: 10000 IU (INTERNATIONAL UNIT) DAILY;
     Route: 058
     Dates: start: 20140502, end: 20140509
  17. SIMVASTATIN-MEPHA [Concomitant]
     Indication: DYSLIPIDAEMIA
     Dosage: 20 MILLIGRAM DAILY;
     Route: 048
     Dates: end: 20140427
  18. CEFTRIAXON SANDOZ [Suspect]
     Active Substance: CEFTRIAXONE
     Indication: ARTHRITIS BACTERIAL
     Dosage: 2 GRAM DAILY;
     Route: 042
     Dates: start: 20140427, end: 201404
  19. ZYLORIC [Suspect]
     Active Substance: ALLOPURINOL
     Dosage: 100 MILLIGRAM DAILY;
     Route: 048
     Dates: start: 20140505, end: 20140519
  20. NEXIUM [Concomitant]
     Active Substance: ESOMEPRAZOLE MAGNESIUM
     Dosage: 40 MILLIGRAM DAILY;
     Route: 048
  21. FRAGMIN [Concomitant]
     Active Substance: DALTEPARIN SODIUM
     Dosage: 18000 IU (INTERNATIONAL UNIT) DAILY;
     Route: 058
     Dates: start: 20140510, end: 20140513
  22. FRAGMIN [Concomitant]
     Active Substance: DALTEPARIN SODIUM
     Route: 058
     Dates: start: 20140519, end: 20140519
  23. FRAGMIN [Concomitant]
     Active Substance: DALTEPARIN SODIUM
     Dosage: 7500 IU (INTERNATIONAL UNIT) DAILY;
     Route: 058
     Dates: start: 20140520, end: 20140526

REACTIONS (6)
  - Toxic epidermal necrolysis [Recovered/Resolved]
  - Drug reaction with eosinophilia and systemic symptoms [Recovering/Resolving]
  - Tubulointerstitial nephritis [Recovering/Resolving]
  - Rash [Recovering/Resolving]
  - Skin disorder [Recovering/Resolving]
  - Generalised erythema [Recovering/Resolving]

NARRATIVE: CASE EVENT DATE: 20140430
